FAERS Safety Report 8588824-0 (Version None)
Quarter: 2012Q3

REPORT INFORMATION
  Report Type: 
  Country: None (occurrence: None)
  Receive Date: 20120813
  Receipt Date: 20120801
  Transmission Date: 20120928
  Serious: Yes (Hospitalization)
  Sender: FDA-Public Use
  Company Number: US-BAYER-2012-079360

PATIENT
  Age: 28 Year
  Sex: Female
  Weight: 78.9 kg

DRUGS (10)
  1. FLUTICASONE PROPIONATE [Concomitant]
     Indication: ASTHMA
     Dosage: UNK
     Dates: start: 20031126
  2. ALBUTEROL [Concomitant]
     Dosage: UNK
     Dates: start: 20110628
  3. MECLIZINE [Concomitant]
  4. DOXYCYCLINE HCL [Concomitant]
     Indication: ACNE
     Dosage: UNK
     Dates: start: 20031126, end: 20120318
  5. YASMIN [Suspect]
  6. DROSPIRENONE AND ETHINYL ESTRADIOL [Suspect]
  7. SYNTHROID [Concomitant]
     Dosage: 0.05 MCG, 1 TABLET QD
     Route: 048
     Dates: start: 20100126, end: 20110628
  8. ADVAIR DISKUS 100/50 [Concomitant]
  9. LEXAPRO [Concomitant]
     Dosage: 10 MG, 1 TABLET EVERYDAY
     Route: 048
     Dates: start: 20071009, end: 20110628
  10. ZOCOR [Concomitant]

REACTIONS (1)
  - CEREBROVASCULAR ACCIDENT [None]
